FAERS Safety Report 6738006-X (Version None)
Quarter: 2010Q2

REPORT INFORMATION
  Report Type: 
  Country: None (occurrence: None)
  Receive Date: 20100524
  Receipt Date: 20100518
  Transmission Date: 20101027
  Serious: Yes (Hospitalization)
  Sender: FDA-Public Use
  Company Number: GB-ROCHE-703977

PATIENT
  Age: 2 Month
  Sex: Male

DRUGS (4)
  1. CEFTRIAXONE SODIUM [Suspect]
     Indication: DRUG USE FOR UNKNOWN INDICATION
     Route: 065
  2. AMOXICILLIN [Suspect]
     Indication: DRUG USE FOR UNKNOWN INDICATION
     Route: 065
  3. PREVENAR [Suspect]
     Dosage: DOSAGE FORM: PREFILLED SYRING, DRUG NAME WAS REPORTED AS PREVENAR 13
     Route: 065
     Dates: start: 20100416, end: 20100416
  4. VACCINES [Concomitant]

REACTIONS (6)
  - COLITIS [None]
  - CONDITION AGGRAVATED [None]
  - DIARRHOEA [None]
  - FREQUENT BOWEL MOVEMENTS [None]
  - HAEMATOCHEZIA [None]
  - MUCOUS STOOLS [None]
